FAERS Safety Report 10883054 (Version 1)
Quarter: 2015Q1

REPORT INFORMATION
  Report Type: Spontaneous
  Country: US (occurrence: None)
  Receive Date: 20150226
  Receipt Date: 20150226
  Transmission Date: 20150721
  Serious: No
  Sender: FDA-Public Use
  Company Number: None

PATIENT
  Age: 40 Year
  Sex: Female
  Weight: 117.94 kg

DRUGS (1)
  1. MIRENA [Suspect]
     Active Substance: LEVONORGESTREL

REACTIONS (5)
  - Complication of device removal [None]
  - Pain [None]
  - Embedded device [None]
  - Device breakage [None]
  - Device dislocation [None]

NARRATIVE: CASE EVENT DATE: 20150224
